FAERS Safety Report 19962608 (Version 2)
Quarter: 2021Q4

REPORT INFORMATION
  Report Type: Report from Study
  Country: GB (occurrence: GB)
  Receive Date: 20211018
  Receipt Date: 20211112
  Transmission Date: 20220303
  Serious: Yes (Hospitalization)
  Sender: FDA-Public Use
  Company Number: GB-KOREA IPSEN PHARMA-2021-20475

PATIENT
  Age: 54 Year
  Sex: Male

DRUGS (1)
  1. LANREOTIDE ACETATE [Suspect]
     Active Substance: LANREOTIDE ACETATE
     Indication: Neuroendocrine tumour
     Dosage: 120MG/0.5ML
     Route: 058

REACTIONS (7)
  - Depressed level of consciousness [Unknown]
  - Lower respiratory tract infection [Unknown]
  - Dehydration [Unknown]
  - Cortisol decreased [Unknown]
  - Dyspnoea at rest [Unknown]
  - Oxygen saturation decreased [Unknown]
  - General physical health deterioration [Unknown]

NARRATIVE: CASE EVENT DATE: 20210101
